FAERS Safety Report 24566054 (Version 2)
Quarter: 2025Q3

REPORT INFORMATION
  Report Type: Report from Study
  Country: US (occurrence: US)
  Receive Date: 20241030
  Receipt Date: 20250803
  Transmission Date: 20251020
  Serious: Yes (Other)
  Sender: ALEXION PHARMACEUTICALS
  Company Number: 2024A100915

PATIENT
  Sex: Male

DRUGS (1)
  1. TAGRISSO [Suspect]
     Active Substance: OSIMERTINIB
     Indication: Lung carcinoma cell type unspecified stage 0
     Dosage: 80 MILLIGRAM, QD
     Dates: start: 202202

REACTIONS (6)
  - Rash [Recovering/Resolving]
  - Pruritus [Unknown]
  - Feeling hot [Unknown]
  - Dry eye [Unknown]
  - Ocular discomfort [Unknown]
  - Glaucoma [Unknown]
